FAERS Safety Report 11752752 (Version 3)
Quarter: 2016Q1

REPORT INFORMATION
  Report Type: Spontaneous
  Country: US (occurrence: US)
  Receive Date: 20151119
  Receipt Date: 20160106
  Transmission Date: 20160525
  Serious: Yes (Hospitalization)
  Sender: FDA-Public Use
  Company Number: US-009507513-1511USA005837

PATIENT
  Age: 78 Year
  Sex: Female

DRUGS (2)
  1. DIFICID [Suspect]
     Active Substance: FIDAXOMICIN
     Dosage: UNK
     Route: 048
     Dates: start: 2015, end: 2015
  2. DIFICID [Suspect]
     Active Substance: FIDAXOMICIN
     Indication: DIARRHOEA
     Dosage: 2 TABLETS OF 200 MG, QD
     Route: 048
     Dates: start: 201510, end: 2015

REACTIONS (2)
  - Diarrhoea [Recovered/Resolved]
  - Drug ineffective [Unknown]

NARRATIVE: CASE EVENT DATE: 201510
